FAERS Safety Report 12340838 (Version 1)
Quarter: 2016Q2

REPORT INFORMATION
  Report Type: Spontaneous
  Country: FR (occurrence: FR)
  Receive Date: 20160506
  Receipt Date: 20160506
  Transmission Date: 20160815
  Serious: Yes (Hospitalization)
  Sender: FDA-Public Use
  Company Number: FR-009507513-1602FRA004119

PATIENT
  Sex: Male
  Weight: 83.2 kg

DRUGS (13)
  1. PREVISCAN [Concomitant]
     Active Substance: FLUINDIONE
     Indication: PRODUCT USED FOR UNKNOWN INDICATION
     Dosage: 20 MG, QD (ONE INTAKE ONCE A DAY ORALLY IN THE EVENING)
     Route: 048
  2. COLCHIMAX (COLCHICINE (+) DICYCLOMINE HYDROCHLORIDE) [Suspect]
     Active Substance: COLCHICINE\DICYCLOMINE HYDROCHLORIDE
     Indication: PRODUCT USED FOR UNKNOWN INDICATION
     Dosage: 1 DF, QD (ONE INTAKE ONCE A DAY ORALLY IN THE MORNING)
     Route: 048
     Dates: end: 20160116
  3. XATRAL [Concomitant]
     Active Substance: ALFUZOSIN
     Dosage: AT 2 TABLETS PER DAY AFTER ANOREXIA OCCURRENCE
  4. CRESTOR [Concomitant]
     Active Substance: ROSUVASTATIN CALCIUM
     Indication: PRODUCT USED FOR UNKNOWN INDICATION
     Dosage: 10 MG, ONE INTAKE ONCE A DAY IN THE EVENING
     Route: 048
  5. LASILIX [Concomitant]
     Active Substance: FUROSEMIDE
     Indication: PRODUCT USED FOR UNKNOWN INDICATION
     Dosage: 40 MG, QD ( ONE INTAKE ONCE A DAY ORALLY IN THE MORNING)
  6. AMLODIPINE MALEATE [Concomitant]
     Active Substance: AMLODIPINE MALEATE
     Indication: PRODUCT USED FOR UNKNOWN INDICATION
     Dosage: 5 MG, QD (ONE INTAKE ONCE A DAY ORALLY AT MIDDAY)
  7. VELMETIA [Suspect]
     Active Substance: METFORMIN\SITAGLIPTIN
     Indication: TYPE 2 DIABETES MELLITUS
     Dosage: 1 DF, BID (ONE INTAKE AT MIDDAY AND ANOTHER ONE IN THE EVENING)
     Route: 048
     Dates: start: 2013, end: 20160116
  8. KARDEGIC [Concomitant]
     Active Substance: ASPIRIN LYSINE
     Indication: PRODUCT USED FOR UNKNOWN INDICATION
     Dosage: 75 MG, QD (ONE INTAKE ONCE A DAY ORALLY AT MIDDAY)
  9. XATRAL [Concomitant]
     Active Substance: ALFUZOSIN
     Indication: PRODUCT USED FOR UNKNOWN INDICATION
     Dosage: 10 MG, ONCE A DAY IN THE EVENING
     Route: 048
  10. TRANSIPEG [Concomitant]
     Active Substance: POLYETHYLENE GLYCOL 3350
     Indication: PRODUCT USED FOR UNKNOWN INDICATION
     Dosage: 5.9 G, QD (ONE INTAKE ONCE A DAY ORALLY IN THE MORNING)
     Route: 048
  11. IRBESARTAN. [Suspect]
     Active Substance: IRBESARTAN
     Indication: ESSENTIAL HYPERTENSION
     Dosage: 150 MG, QD (ONE INTAKE ONCE A DAY ORALLY IN THE MORNIN)
     Route: 048
     Dates: end: 20160116
  12. LASILIX [Concomitant]
     Active Substance: FUROSEMIDE
     Dosage: 40 MG TWICE DAY AFTER ANOREXIA OCCURRENCE
  13. ALLOPURINOL. [Concomitant]
     Active Substance: ALLOPURINOL
     Indication: PRODUCT USED FOR UNKNOWN INDICATION
     Dosage: 200 MG, QD (ONE INTAKE ONCE A DAY ORALLY AT MIDDAY)

REACTIONS (4)
  - Hyperkalaemia [Recovered/Resolved]
  - Acute prerenal failure [Recovered/Resolved]
  - Lactic acidosis [Recovered/Resolved]
  - Drug level increased [Recovered/Resolved]
